FAERS Safety Report 19549429 (Version 2)
Quarter: 2022Q1

REPORT INFORMATION
  Report Type: Spontaneous
  Country: DE (occurrence: DE)
  Receive Date: 20210715
  Receipt Date: 20220225
  Transmission Date: 20220423
  Serious: Yes (Other)
  Sender: FDA-Public Use
  Company Number: DE-EMA-DD-20210706-AGRAHARI_P-172219

PATIENT
  Age: 39 Year
  Sex: Male

DRUGS (2)
  1. PANTOPRAZOLE [Suspect]
     Active Substance: PANTOPRAZOLE
     Indication: Gastrooesophageal reflux disease
     Dosage: UNK
     Route: 065
  2. SECUKINUMAB [Suspect]
     Active Substance: SECUKINUMAB
     Indication: Psoriasis
     Dosage: 300 MILLIGRAM
     Route: 058

REACTIONS (5)
  - Paradoxical drug reaction [Recovered/Resolved]
  - Cutaneous lupus erythematosus [Recovered/Resolved]
  - Arthralgia [Unknown]
  - Fatigue [Unknown]
  - Abdominal pain [Unknown]
